FAERS Safety Report 25738736 (Version 1)
Quarter: 2025Q3

REPORT INFORMATION
  Report Type: Spontaneous
  Country: US (occurrence: US)
  Receive Date: 20250829
  Receipt Date: 20250829
  Transmission Date: 20251020
  Serious: No
  Sender: COLGATE
  Company Number: US-COLGATE PALMOLIVE COMPANY-20250300318

PATIENT
  Age: 54 Year
  Sex: Male

DRUGS (2)
  1. COLGATE TOTAL SF WHITENING [Suspect]
     Active Substance: STANNOUS FLUORIDE
     Dates: start: 20250213, end: 20250307
  2. COLGATE TOTAL ADVANCED CLEAN [Suspect]
     Active Substance: SODIUM FLUORIDE\TRICLOSAN

REACTIONS (8)
  - Product taste abnormal [Unknown]
  - Oral mucosal exfoliation [Unknown]
  - Skin irritation [Recovering/Resolving]
  - Oral mucosal roughening [Unknown]
  - Eating disorder [Unknown]
  - Stomatitis [Recovering/Resolving]
  - Stomatitis [Recovering/Resolving]
  - Aphthous ulcer [Unknown]

NARRATIVE: CASE EVENT DATE: 20250201
